FAERS Safety Report 9161669 (Version 5)
Quarter: 2013Q2

REPORT INFORMATION
  Report Type: Spontaneous
  Country: US (occurrence: US)
  Receive Date: 20130314
  Receipt Date: 20130424
  Transmission Date: 20140414
  Serious: Yes (Hospitalization, Other)
  Sender: FDA-Public Use
  Company Number: US-AMGEN-USASP2013016528

PATIENT
  Age: 71 Year
  Sex: Female
  Weight: 66.5 kg

DRUGS (64)
  1. EPOGEN [Suspect]
     Indication: NEPHROGENIC ANAEMIA
     Dosage: 20000 UNIT, Q3WK
     Route: 058
     Dates: start: 2002
  2. ARANESP [Suspect]
     Indication: NEPHROGENIC ANAEMIA
     Dosage: 200 MUG, QWK
     Route: 058
  3. PROCRIT [Suspect]
     Indication: NEPHROGENIC ANAEMIA
  4. VENOFEN [Concomitant]
     Dosage: 200 G, QWK
  5. IMMUNOSUPPRESSANTS [Concomitant]
     Dosage: UNK
  6. COREG [Concomitant]
     Dosage: 6.250 MG, Q AM
     Route: 048
     Dates: start: 20130311
  7. COREG [Concomitant]
     Dosage: 6.250 MG, Q HS
     Route: 048
     Dates: start: 20130311
  8. VENOFER [Concomitant]
     Dosage: 200 MG, QO WK - COMPLETE 7/13
     Route: 042
     Dates: start: 20130218
  9. IRON [Concomitant]
     Dosage: 50 MG, 2 BID
     Route: 048
     Dates: start: 20130131
  10. IRON [Concomitant]
     Dosage: 55 MG, UNK
     Route: 048
  11. ESTRADIOL [Concomitant]
     Dosage: 1 MG, HS
     Route: 048
     Dates: start: 20130131
  12. VICODIN [Concomitant]
     Dosage: 7.5/325, AS NECESSARY
     Route: 048
     Dates: start: 20130131
  13. NEXIUM                             /01479302/ [Concomitant]
     Dosage: 40 MG, QD
     Route: 048
     Dates: start: 20130131
  14. CLONAZEPAM [Concomitant]
     Dosage: 2 MG, BID
     Route: 048
     Dates: start: 20121204
  15. PREDNISONE [Concomitant]
     Dosage: 5 MG, QD
     Route: 048
     Dates: start: 20121017
  16. DIALYVITE [Concomitant]
     Dosage: UNK UNK, QD
     Route: 048
     Dates: start: 20120912
  17. GENTAMICIN [Concomitant]
     Dosage: 80 MG, QD MANUAL X 2 WKS
     Route: 033
     Dates: start: 20120912
  18. IMITREX                            /01044801/ [Concomitant]
     Dosage: 50 MG, AS NECESSARY
     Route: 048
     Dates: start: 20120912
  19. HYDROCODONE [Concomitant]
     Dosage: 7.5/325  Q 4-6 HRS PRN
     Route: 048
     Dates: start: 20120308
  20. HYDROCODONE [Concomitant]
     Dosage: 7.5/325  Q 4-6 HRS PRN
     Route: 048
     Dates: start: 20120625
  21. HYDROCODONE [Concomitant]
     Dosage: 7.5/325  Q 4-6 HRS PRN
     Route: 048
     Dates: start: 20120711
  22. OMEPRAZOLE [Concomitant]
     Dosage: 20 MG, QD BEFORE MEAL
     Route: 048
     Dates: start: 20120418
  23. MELATONIN [Concomitant]
     Dosage: 3 MG, AS NECESSARY
     Route: 048
     Dates: start: 20120126
  24. CITALOPRAM [Concomitant]
     Dosage: 20 MG, IN EVENING
     Dates: start: 20120126
  25. VENTOLIN                           /00139501/ [Concomitant]
     Indication: ASTHMA
     Dosage: 17 ML, AS NECESSARY
     Route: 048
     Dates: start: 20110711
  26. PHENERGAN                          /00033001/ [Concomitant]
     Indication: NAUSEA
     Dosage: 25 MG, AS NECESSARY
     Route: 048
     Dates: start: 20110711
  27. LOMOTIL [Concomitant]
     Dosage: 2.5 MG, UNK
     Route: 048
     Dates: start: 20110711
  28. BENADRYL                           /00000402/ [Concomitant]
     Dosage: 25 MG, QD
     Route: 048
     Dates: start: 20110711
  29. BENADRYL                           /00000402/ [Concomitant]
     Dosage: 25 MG CAP, AS NECESSARY
  30. ALBUTEROL                          /00139501/ [Concomitant]
     Dosage: 5/3 MG, AS NECESSARY
     Route: 048
     Dates: start: 20110711
  31. IPRATROPIUM [Concomitant]
     Dosage: 5/3 MG , AS NECESSARY
     Route: 048
     Dates: start: 20110711
  32. WELCHOL [Concomitant]
     Dosage: 625 MG, BID
     Route: 048
     Dates: start: 20110711
  33. SYNTHROID [Concomitant]
     Dosage: 88 MG, QD
     Route: 048
     Dates: start: 20110711
  34. SYNTHROID [Concomitant]
     Dosage: 100 MCG, QD
     Route: 048
  35. ADVAIR [Concomitant]
     Dosage: 250MCG-50MCG 1AM/1PM 7WO PUFFS TWICE A DAY
     Route: 048
     Dates: start: 20110711
  36. CALCIUM ACETATE [Concomitant]
     Dosage: 667 MG, BID 4 TIMES EVERY DAY WITH MEALS
  37. CARVEDILOL [Concomitant]
     Dosage: 3.125 MG, BID WITH FOOD
  38. CELEXA                             /00582602/ [Concomitant]
     Dosage: 20 MG, QD
     Route: 048
  39. FLEXERIL                           /00428402/ [Concomitant]
     Dosage: 10 MG, AS NECESSARY
  40. GABAPENTIN [Concomitant]
     Dosage: 100 MG, BID
     Route: 048
  41. HYDROXYZINE [Concomitant]
     Dosage: 25 MG, 4 TIMES EVERY DAY
     Route: 048
  42. LASIX                              /00032601/ [Concomitant]
     Dosage: 40 MG, AS NECESSARY
  43. MIRAPEX [Concomitant]
     Dosage: 3.75 MG, QD
     Route: 048
  44. PROMETHAZINE [Concomitant]
     Dosage: 25 MG, EVERY 4 - 6 HOURS AS NEEDED
  45. SODIUM BICARBONATE [Concomitant]
     Dosage: 650 MG, QID
  46. VENTOLIN                           /00139501/ [Concomitant]
     Dosage: 90 MCG, INHALE 2 PUFF BY INHALATION ROUTE EVERY 4 - 6 HOURS AS NEEDED
  47. CEFTAZIDIME [Concomitant]
     Dosage: 10 M X5 DAYS
  48. LEVAQUIN [Concomitant]
     Dosage: 500 MG, QWK
     Route: 048
  49. HEPARIN [Concomitant]
     Dosage: 1000 UNIT/ ML,
  50. FERAHEME [Concomitant]
     Dosage: 510 MG, QWK
     Route: 042
  51. KAYEXALATE [Concomitant]
     Dosage: 30 G, UNK
     Route: 048
  52. VANCOMYCIN [Concomitant]
     Dosage: 10 UNK, 2 TIMES/WK FOR THREE WEEKS
     Route: 033
  53. AMOXICILLIN [Concomitant]
     Dosage: 500 MG, AS NECESSARY
  54. DUONEB [Concomitant]
     Dosage: 0.5- 2.5 MG, TID
  55. FEOSOL [Concomitant]
     Dosage: 200 MG, BID
  56. NORCO [Concomitant]
     Dosage: 7.5-325 MG, AS NECESSARY
  57. OXYGEN [Concomitant]
     Dosage: UNK LITRE PER MIN
  58. PHOSLO [Concomitant]
     Dosage: 667 MG, UNK
  59. RANITIDINE [Concomitant]
     Dosage: 75 MG, AS NECESSARY
  60. BRAN [Concomitant]
     Dosage: 1000 MG, QD
  61. VITAMIN D3 [Concomitant]
     Dosage: 2000 MG, QD
  62. INFLUENZA VACCINE [Concomitant]
     Dosage: UNK
  63. METANX [Concomitant]
     Dosage: 3-35-2 MG, QD
  64. LEXAPRO [Concomitant]
     Dosage: 10 MG, QD

REACTIONS (24)
  - Nephrogenic anaemia [Not Recovered/Not Resolved]
  - Dyspnoea [Not Recovered/Not Resolved]
  - Erythema infectiosum [Unknown]
  - Drug effect decreased [Unknown]
  - Renal impairment [Unknown]
  - Carotid artery stenosis [Unknown]
  - Mitral valve incompetence [Unknown]
  - Chronic obstructive pulmonary disease [Unknown]
  - Asthma [Unknown]
  - Vertigo [Unknown]
  - Cardiac disorder [Unknown]
  - Pneumonia [Unknown]
  - Cardiac failure [Unknown]
  - Hip surgery [Unknown]
  - Aplasia pure red cell [Unknown]
  - Contusion [Unknown]
  - Drug intolerance [Unknown]
  - Hypercalcaemia [Unknown]
  - Hyperparathyroidism secondary [Unknown]
  - Hyperlipidaemia [Unknown]
  - Essential hypertension [Unknown]
  - Migraine [Unknown]
  - Lower respiratory tract infection [Unknown]
  - Rash [Unknown]
